FAERS Safety Report 16873477 (Version 5)
Quarter: 2020Q2

REPORT INFORMATION
  Report Type: Spontaneous
  Country: US (occurrence: US)
  Receive Date: 20191001
  Receipt Date: 20200603
  Transmission Date: 20200713
  Serious: No
  Sender: FDA-Public Use
  Company Number: US-PFIZER INC-2019115053

PATIENT
  Age: 80 Year
  Sex: Male
  Weight: 85 kg

DRUGS (5)
  1. LYRICA [Suspect]
     Active Substance: PREGABALIN
     Indication: POLYNEUROPATHY
     Dosage: 100 MG, 2X/DAY
  2. LYRICA [Suspect]
     Active Substance: PREGABALIN
     Indication: NEUROPATHY PERIPHERAL
     Dosage: 75 MG, 2X/DAY
     Route: 048
  3. LYRICA [Suspect]
     Active Substance: PREGABALIN
     Dosage: 300 MG, DAILY (2 100MG IN THE MORNING AND 1 100MG IN THE AFTERNOON)
  4. PAROXETINE. [Concomitant]
     Active Substance: PAROXETINE
     Indication: BEHAVIOUR DISORDER
     Dosage: 50 MG, DAILY
     Route: 048
  5. LYRICA [Suspect]
     Active Substance: PREGABALIN
     Dosage: 150 MG, 2X/DAY[1 CAP(S) 2 TIMES A DAY 90 DAYS]
     Route: 048

REACTIONS (8)
  - Drug ineffective [Unknown]
  - Intentional product misuse [Unknown]
  - Fatigue [Recovering/Resolving]
  - Aphasia [Recovering/Resolving]
  - Somnolence [Recovering/Resolving]
  - Lethargy [Unknown]
  - Feeling abnormal [Recovering/Resolving]
  - Withdrawal syndrome [Unknown]

NARRATIVE: CASE EVENT DATE: 2018
